FAERS Safety Report 19570183 (Version 1)
Quarter: 2021Q3

REPORT INFORMATION
  Report Type: Report from Study
  Country: AU (occurrence: AU)
  Receive Date: 20210715
  Receipt Date: 20210715
  Transmission Date: 20211014
  Serious: Yes (Other)
  Sender: FDA-Public Use
  Company Number: NVSC2021AU157656

PATIENT
  Sex: Female

DRUGS (1)
  1. GLIVEC [Suspect]
     Active Substance: IMATINIB MESYLATE
     Indication: HYPEREOSINOPHILIC SYNDROME
     Dosage: 400 MG, QD
     Route: 048
     Dates: start: 20100812, end: 201802

REACTIONS (3)
  - Eosinophilia [Unknown]
  - Rash pruritic [Unknown]
  - Product use in unapproved indication [Unknown]
